FAERS Safety Report 16844190 (Version 3)
Quarter: 2019Q4

REPORT INFORMATION
  Report Type: Spontaneous
  Country: CA (occurrence: CA)
  Receive Date: 20190924
  Receipt Date: 20191016
  Transmission Date: 20200122
  Serious: Yes (Life-Threatening, Other)
  Sender: FDA-Public Use
  Company Number: CA-AMGEN-CANSP2019155521

PATIENT

DRUGS (4)
  1. BKM 120 [Suspect]
     Active Substance: BUPARLISIB HYDROCHLORIDE
     Indication: COLORECTAL CANCER METASTATIC
     Dosage: 60 MILLIGRAM, QD (20 CYCLES)
     Route: 065
  2. PANITUMUMAB [Suspect]
     Active Substance: PANITUMUMAB
     Indication: COLORECTAL CANCER METASTATIC
     Dosage: 6 MILLIGRAM/KILOGRAM, Q2WK
     Route: 042
  3. BKM 120 [Suspect]
     Active Substance: BUPARLISIB HYDROCHLORIDE
     Dosage: 40 MILLIGRAM, QD (10 CYCLES)
     Route: 065
  4. BKM 120 [Suspect]
     Active Substance: BUPARLISIB HYDROCHLORIDE
     Dosage: 60 MILLIGRAM, (5 OUT OF 7 DAYS PER WEEK) (22 CYCLES)
     Route: 065

REACTIONS (29)
  - Dry skin [Unknown]
  - Neutrophil count abnormal [Unknown]
  - Constipation [Unknown]
  - Anxiety [Unknown]
  - Pruritus [Unknown]
  - Anaemia [Unknown]
  - Blood alkaline phosphatase abnormal [Unknown]
  - Depression [Unknown]
  - Haemoglobin abnormal [Unknown]
  - Rash [Unknown]
  - Fatigue [Unknown]
  - Lymphocyte count abnormal [Unknown]
  - Dermatitis acneiform [Unknown]
  - Hypomagnesaemia [Unknown]
  - Alanine aminotransferase abnormal [Unknown]
  - Hyperglycaemia [Unknown]
  - Nausea [Unknown]
  - Aspartate aminotransferase abnormal [Unknown]
  - Off label use [Unknown]
  - Blood bilirubin abnormal [Unknown]
  - Rash maculo-papular [Unknown]
  - Blood creatinine abnormal [Unknown]
  - Mucosal inflammation [Unknown]
  - Hypocalcaemia [Unknown]
  - Diarrhoea [Unknown]
  - Platelet count abnormal [Unknown]
  - Stomatitis [Unknown]
  - Dry eye [Unknown]
  - Decreased appetite [Unknown]
